APPROVED DRUG PRODUCT: OPILL
Active Ingredient: NORGESTREL
Strength: 0.075MG
Dosage Form/Route: TABLET;ORAL
Application: N017031 | Product #001
Applicant: LABORATOIRE HRA PHARMA
Approved: Approved Prior to Jan 1, 1982 | RLD: Yes | RS: Yes | Type: OTC

EXCLUSIVITY:
Code: RTO | Date: Jul 13, 2026